FAERS Safety Report 19942694 (Version 1)
Quarter: 2021Q4

REPORT INFORMATION
  Report Type: Report from Study
  Country: DK (occurrence: DK)
  Receive Date: 20211011
  Receipt Date: 20211011
  Transmission Date: 20220303
  Serious: Yes (Other)
  Sender: FDA-Public Use
  Company Number: DK-NOVARTISPH-NVSC2021DK227135

PATIENT
  Sex: Female

DRUGS (1)
  1. CAPMATINIB [Suspect]
     Active Substance: CAPMATINIB
     Indication: Malignant melanoma
     Dosage: 400 MG, BID
     Route: 065
     Dates: start: 20210729, end: 20210826

REACTIONS (1)
  - Hepatotoxicity [Unknown]
